FAERS Safety Report 19917994 (Version 1)
Quarter: 2021Q4

REPORT INFORMATION
  Report Type: Spontaneous
  Country: None (occurrence: US)
  Receive Date: 20211004
  Receipt Date: 20211004
  Transmission Date: 20220303
  Serious: No
  Sender: FDA-Public Use
  Company Number: US-OTSUKA-2021_007296

PATIENT

DRUGS (1)
  1. ABILIFY [Suspect]
     Active Substance: ARIPIPRAZOLE
     Indication: Depression
     Dosage: UNK
     Route: 065

REACTIONS (16)
  - Product prescribing error [Unknown]
  - Headache [Unknown]
  - Extrapyramidal disorder [Unknown]
  - Somnolence [Unknown]
  - Restlessness [Unknown]
  - Fatigue [Unknown]
  - Sedation [Unknown]
  - Agitation [Unknown]
  - Insomnia [Unknown]
  - Anxiety [Unknown]
  - Weight increased [Unknown]
  - Blood cholesterol abnormal [Unknown]
  - Blood glucose increased [Unknown]
  - Nausea [Unknown]
  - Vomiting [Unknown]
  - Constipation [Unknown]
